FAERS Safety Report 5292104-9 (Version None)
Quarter: 2007Q2

REPORT INFORMATION
  Report Type: 
  Country: None (occurrence: None)
  Receive Date: 20070410
  Receipt Date: 20070402
  Transmission Date: 20071010
  Serious: Yes (Hospitalization, Other)
  Sender: FDA-Public Use
  Company Number: NO-BAYER-200712008GDS

PATIENT
  Age: 52 Year
  Sex: Female

DRUGS (4)
  1. DTIC-DOME [Suspect]
     Indication: MALIGNANT MELANOMA
     Route: 042
     Dates: start: 20070110, end: 20070221
  2. MDX-010 [Suspect]
     Indication: MALIGNANT MELANOMA
     Route: 042
     Dates: start: 20070110, end: 20070314
  3. PARALGIN FORTE [Concomitant]
     Indication: DRUG USE FOR UNKNOWN INDICATION
     Dates: start: 20070131
  4. ETHYLMORPHINE HYDROCHLORIDE [Concomitant]
     Indication: DRUG USE FOR UNKNOWN INDICATION
     Route: 065
     Dates: start: 20070314

REACTIONS (4)
  - ABDOMINAL DISTENSION [None]
  - ABDOMINAL PAIN [None]
  - CONSTIPATION [None]
  - METASTATIC MALIGNANT MELANOMA [None]
